FAERS Safety Report 8848166 (Version 1)
Quarter: 2012Q4

REPORT INFORMATION
  Report Type: 
  Country: US (occurrence: US)
  Receive Date: 20121018
  Receipt Date: 20121018
  Transmission Date: 20130627
  Serious: Yes (Death)
  Sender: FDA-Public Use
  Company Number: US-ROCHE-1132275

PATIENT
  Sex: Male

DRUGS (4)
  1. XELODA [Suspect]
     Indication: PANCREATIC CARCINOMA METASTATIC
     Route: 065
     Dates: start: 20100527, end: 20100826
  2. XELODA [Suspect]
     Indication: METASTASES TO LIVER
  3. GEMCITABINE [Concomitant]
  4. OXALIPLATIN [Concomitant]

REACTIONS (1)
  - Blood disorder [Fatal]
